FAERS Safety Report 4581214-7 (Version None)
Quarter: 2005Q1

REPORT INFORMATION
  Report Type: 
  Country: None (occurrence: None)
  Receive Date: 20050214
  Receipt Date: 20040901
  Transmission Date: 20050727
  Serious: No
  Sender: FDA-Public Use
  Company Number: US-GLAXOSMITHKLINE-A0524249A

PATIENT
  Sex: Female

DRUGS (6)
  1. LAMICTAL [Suspect]
     Indication: ILL-DEFINED DISORDER
     Dosage: 100MG TWICE PER DAY
     Route: 048
     Dates: start: 20010301
  2. ADIARIL [Concomitant]
     Route: 065
  3. XANAX [Concomitant]
  4. MAXALT [Concomitant]
  5. WELLBUTRIN XL [Concomitant]
  6. EYE DROPS [Concomitant]

REACTIONS (1)
  - BENIGN NEOPLASM OF THYROID GLAND [None]
